FAERS Safety Report 22639545 (Version 1)
Quarter: 2023Q2

REPORT INFORMATION
  Report Type: Spontaneous
  Country: US (occurrence: None)
  Receive Date: 20230622
  Receipt Date: 20230622
  Transmission Date: 20230721
  Serious: No
  Sender: FDA-Public Use
  Company Number: None

PATIENT
  Age: 50 Year
  Sex: Female
  Weight: 65.77 kg

DRUGS (1)
  1. NYSTATIN [Suspect]
     Active Substance: NYSTATIN
     Dosage: FREQUENCY : 4 TIMES A DAY;?
     Dates: start: 201912, end: 202301

REACTIONS (4)
  - Gingivitis [None]
  - Oral infection [None]
  - Pharyngitis [None]
  - Tooth disorder [None]

NARRATIVE: CASE EVENT DATE: 20191231
